FAERS Safety Report 5268939-5 (Version None)
Quarter: 2007Q1

REPORT INFORMATION
  Report Type: 
  Country: None (occurrence: None)
  Receive Date: 20070319
  Receipt Date: 20070308
  Transmission Date: 20070707
  Serious: Yes (Death)
  Sender: FDA-Public Use
  Company Number: JP-JNJFOC-20070302450

PATIENT
  Sex: Female

DRUGS (3)
  1. DUROTEP [Suspect]
     Dosage: HALF THE PATCH AREA WAS COVERED
     Route: 062
  2. DUROTEP [Suspect]
     Indication: GASTRIC CANCER
     Route: 062
  3. LASIX [Concomitant]
     Indication: ASCITES
     Route: 048

REACTIONS (2)
  - FEELING COLD [None]
  - GASTRIC CANCER [None]
